FAERS Safety Report 7888500-3 (Version None)
Quarter: 2011Q4

REPORT INFORMATION
  Report Type: 
  Country: None (occurrence: None)
  Receive Date: 20111103
  Receipt Date: 20111019
  Transmission Date: 20120403
  Serious: Yes (Life-Threatening, Hospitalization, Other)
  Sender: FDA-Public Use
  Company Number: AU-B.I. PHARMACEUTICALS,INC./RIDGEFIELD-2011-AU-02033AU

PATIENT
  Sex: Male
  Weight: 95.4 kg

DRUGS (11)
  1. LIPITOR [Concomitant]
     Dosage: 60 MG
     Route: 048
  2. ASPIRIN [Concomitant]
     Dosage: 5% OINTMENT APPLY BD
  3. ISOSORBIDE MONONITRATE [Concomitant]
     Dosage: 60 MG
     Route: 048
  4. NITROLINGUAL [Concomitant]
  5. TEMAZEPAM [Concomitant]
     Dosage: 10 MG
     Route: 048
  6. PRADAXA [Suspect]
     Indication: ATRIAL FIBRILLATION
     Dosage: 220 MG
     Dates: start: 20111007, end: 20111013
  7. LANOXIN [Concomitant]
     Dosage: 62.5 MCG
     Route: 048
  8. TENORMIN [Concomitant]
     Dosage: 50 MG
     Route: 048
  9. VITAMIN B-12 [Concomitant]
     Dosage: 200 MCG
     Route: 048
  10. XALATAN [Concomitant]
  11. PANADOL OSTEO [Concomitant]
     Dosage: 2 TID PRN
     Route: 048

REACTIONS (6)
  - RECTAL HAEMORRHAGE [None]
  - HAEMATOCHEZIA [None]
  - COLON CANCER [None]
  - COLONIC POLYP [None]
  - OESOPHAGEAL ULCER [None]
  - MELAENA [None]
